FAERS Safety Report 9387272 (Version 1)
Quarter: 2013Q3

REPORT INFORMATION
  Report Type: Report from Study
  Country: US (occurrence: US)
  Receive Date: 20130708
  Receipt Date: 20130708
  Transmission Date: 20140515
  Serious: Yes (Hospitalization, Other)
  Sender: FDA-Public Use
  Company Number: US-ROCHE-1244143

PATIENT
  Sex: Male

DRUGS (11)
  1. HERCEPTIN [Suspect]
     Indication: GASTRIC CANCER
     Dosage: IN 250 ML NS AT RATE OF 500 ML/HR
     Route: 042
     Dates: start: 20110930
  2. GRANISETRON HYDROCHLORIDE [Concomitant]
     Dosage: OVER 10 MINUTES IN 50 ML NS AT RATE OF 300 ML/HR
     Route: 042
  3. DEXAMETHASONE SODIUM METASULFOBENZOATE [Concomitant]
     Dosage: AT RATE OF 300 ML/HR
     Route: 042
  4. PROCHLORPERAZINE MALEATE [Concomitant]
     Route: 048
  5. ONDANSETRON [Concomitant]
     Route: 048
  6. NEXIUM [Concomitant]
     Dosage: DELAYED RELEASE
     Route: 065
  7. ASA [Concomitant]
     Route: 048
  8. DIGOXIN [Concomitant]
     Route: 048
  9. TOPROL XL [Concomitant]
     Route: 048
  10. PACLITAXEL [Concomitant]
     Route: 042
  11. CARBOPLATIN [Concomitant]
     Route: 042

REACTIONS (13)
  - Pyrexia [Recovering/Resolving]
  - Hyperhidrosis [Recovering/Resolving]
  - Fatigue [Recovered/Resolved]
  - Diarrhoea [Recovered/Resolved]
  - Dehydration [Recovered/Resolved]
  - Atrial fibrillation [Unknown]
  - Nausea [Recovering/Resolving]
  - Dyspnoea exertional [Recovering/Resolving]
  - Productive cough [Recovering/Resolving]
  - Alopecia [Recovering/Resolving]
  - Drug hypersensitivity [Unknown]
  - Dysgeusia [Unknown]
  - Ageusia [Unknown]
